FAERS Safety Report 5893532-0 (Version None)
Quarter: 2008Q3

REPORT INFORMATION
  Report Type: 
  Country: None (occurrence: None)
  Receive Date: 20080919
  Receipt Date: 20080910
  Transmission Date: 20090109
  Serious: No
  Sender: FDA-Public Use
  Company Number: 2008-183477-NL

PATIENT
  Sex: Female

DRUGS (1)
  1. ETONOGESTREL [Suspect]
     Indication: MENORRHAGIA
     Dosage: DF
     Dates: start: 20080318, end: 20080812

REACTIONS (5)
  - ANAEMIA [None]
  - CHRONIC MYELOID LEUKAEMIA [None]
  - MENORRHAGIA [None]
  - PLATELET COUNT INCREASED [None]
  - UTERINE LEIOMYOMA [None]
